FAERS Safety Report 12418911 (Version 1)
Quarter: 2016Q2

REPORT INFORMATION
  Report Type: Spontaneous
  Country: US (occurrence: None)
  Receive Date: 20160527
  Receipt Date: 20160527
  Transmission Date: 20160815
  Serious: Yes (Disabling)
  Sender: FDA-Public Use
  Company Number: None

PATIENT
  Age: 54 Year
  Sex: Female
  Weight: 74.84 kg

DRUGS (1)
  1. LEVAQUIN [Suspect]
     Active Substance: LEVOFLOXACIN
     Indication: PNEUMONIA
     Route: 048
     Dates: start: 20150517, end: 20150524

REACTIONS (5)
  - Paraesthesia [None]
  - Impaired healing [None]
  - Tendon rupture [None]
  - Neuropathy peripheral [None]
  - Burning sensation [None]

NARRATIVE: CASE EVENT DATE: 20150518
